FAERS Safety Report 24258806 (Version 1)
Quarter: 2024Q3

REPORT INFORMATION
  Report Type: Spontaneous
  Country: US (occurrence: None)
  Receive Date: 20240827
  Receipt Date: 20240827
  Transmission Date: 20241017
  Serious: Yes (Other)
  Sender: Public
  Company Number: None

PATIENT
  Age: 66 Year
  Sex: Male
  Weight: 69.8 kg

DRUGS (1)
  1. JARDIANCE [Suspect]
     Active Substance: EMPAGLIFLOZIN

REACTIONS (4)
  - Seizure [None]
  - Unresponsive to stimuli [None]
  - Urinary incontinence [None]
  - Somnolence [None]

NARRATIVE: CASE EVENT DATE: 20230928
